FAERS Safety Report 25143129 (Version 1)
Quarter: 2025Q2

REPORT INFORMATION
  Report Type: Spontaneous
  Country: US (occurrence: US)
  Receive Date: 20250401
  Receipt Date: 20250401
  Transmission Date: 20250716
  Serious: No
  Sender: ROCHE
  Company Number: US-ROCHE-10000239826

PATIENT
  Sex: Female

DRUGS (1)
  1. ACTEMRA [Suspect]
     Active Substance: TOCILIZUMAB
     Indication: Rheumatoid arthritis
     Route: 058

REACTIONS (6)
  - Abdominal pain upper [Unknown]
  - Flatulence [Unknown]
  - Abdominal discomfort [Unknown]
  - Dyspnoea [Unknown]
  - Cough [Unknown]
  - Faeces pale [Unknown]
